FAERS Safety Report 4484009-8 (Version None)
Quarter: 2004Q4

REPORT INFORMATION
  Report Type: 
  Country: None (occurrence: None)
  Receive Date: 20041020
  Receipt Date: 20041006
  Transmission Date: 20050328
  Serious: Yes (Life-Threatening, Hospitalization)
  Sender: FDA-Public Use
  Company Number: USA041080489

PATIENT
  Sex: Female

DRUGS (8)
  1. HUMALOG [Suspect]
     Indication: DIABETES MELLITUS
     Dosage: 10 U DAY
     Dates: start: 19950101
  2. LANTUS [Concomitant]
  3. . [Concomitant]
  4. VASOTEC [Concomitant]
  5. METOPROLOL SUCCINATE [Concomitant]
  6. CLONIDINE HCL [Concomitant]
  7. LIPITOR [Concomitant]
  8. ASPIRIN [Concomitant]

REACTIONS (11)
  - CARDIAC PROCEDURE COMPLICATION [None]
  - CORONARY ARTERY OCCLUSION [None]
  - CORONARY ARTERY PERFORATION [None]
  - DEVICE FAILURE [None]
  - FOOT FRACTURE [None]
  - HYPERTENSION [None]
  - MEDICATION ERROR [None]
  - MYOCARDIAL INFARCTION [None]
  - OVERWEIGHT [None]
  - PHARMACEUTICAL PRODUCT COMPLAINT [None]
  - WEIGHT INCREASED [None]
